FAERS Safety Report 5950715-9 (Version None)
Quarter: 2008Q4

REPORT INFORMATION
  Report Type: 
  Country: None (occurrence: None)
  Receive Date: 20081022
  Receipt Date: 20080813
  Transmission Date: 20090506
  Serious: No
  Sender: FDA-Public Use
  Company Number: ALL1-2008-02294

PATIENT

DRUGS (1)
  1. VYVANSE [Suspect]
     Dosage: 30 MG

REACTIONS (2)
  - CRYING [None]
  - DRUG EFFECT INCREASED [None]
